FAERS Safety Report 8509054-4 (Version None)
Quarter: 2012Q3

REPORT INFORMATION
  Report Type: 
  Country: None (occurrence: None)
  Receive Date: 20120713
  Receipt Date: 20120706
  Transmission Date: 20120928
  Serious: Yes (Other)
  Sender: FDA-Public Use
  Company Number: PR-ABBOTT-12P-131-0928502-00

PATIENT
  Sex: Female
  Weight: 74.91 kg

DRUGS (10)
  1. CATAFLAM [Concomitant]
     Indication: PRODUCT USED FOR UNKNOWN INDICATION
     Route: 048
     Dates: start: 20120320, end: 20120409
  2. CALCIUM [Concomitant]
     Indication: RHEUMATOID ARTHRITIS
     Dosage: 1 TABLET DAILY
     Route: 048
     Dates: start: 20100101
  3. VITAMIN D [Concomitant]
     Indication: RHEUMATOID ARTHRITIS
     Dosage: 1 TABLET DAILY
     Route: 048
     Dates: start: 20100101
  4. HUMIRA [Suspect]
     Route: 058
     Dates: end: 20120629
  5. SYNTHROID [Concomitant]
     Indication: THYROID DISORDER
     Dosage: 1 TABLET DAILY ON MONDAY TO FRIDAY
     Route: 048
     Dates: start: 20120120
  6. SYNTHROID [Concomitant]
     Dosage: 1 TABLET DAILY ON SATURDAYS + SUNDAYS
     Route: 048
     Dates: start: 20120402
  7. HUMIRA [Suspect]
     Indication: RHEUMATOID ARTHRITIS
     Route: 058
     Dates: end: 20120324
  8. SYNTHROID [Concomitant]
  9. CYMBALTA [Concomitant]
     Indication: PRODUCT USED FOR UNKNOWN INDICATION
     Dosage: 1 TABLET AT BEDTIME
     Route: 048
     Dates: start: 20080101
  10. NEURONTIN [Concomitant]
     Indication: PRODUCT USED FOR UNKNOWN INDICATION
     Route: 048
     Dates: start: 20120320, end: 20120409

REACTIONS (9)
  - SOMNOLENCE [None]
  - BREAST RECONSTRUCTION [None]
  - VOMITING [None]
  - FOOD POISONING [None]
  - DISCOMFORT [None]
  - NASAL CONGESTION [None]
  - GASTROENTERITIS VIRAL [None]
  - ALANINE AMINOTRANSFERASE INCREASED [None]
  - ASPARTATE AMINOTRANSFERASE INCREASED [None]
